FAERS Safety Report 8993115 (Version 1)
Quarter: 2013Q1

REPORT INFORMATION
  Report Type: Spontaneous
  Country: US (occurrence: US)
  Receive Date: 20130102
  Receipt Date: 20130102
  Transmission Date: 20140127
  Serious: Yes (Other)
  Sender: FDA-Public Use
  Company Number: US-ROCHE-1165111

PATIENT
  Age: 14 Year
  Sex: Female

DRUGS (2)
  1. TAMIFLU [Suspect]
     Indication: ANTIVIRAL PROPHYLAXIS
     Dosage: 5 PM
     Route: 048
     Dates: start: 20121204
  2. LANTUS [Concomitant]

REACTIONS (1)
  - Blood glucose increased [Unknown]
